FAERS Safety Report 22072933 (Version 1)
Quarter: 2023Q1

REPORT INFORMATION
  Report Type: Spontaneous
  Country: AU (occurrence: AU)
  Receive Date: 20230308
  Receipt Date: 20230308
  Transmission Date: 20230417
  Serious: Yes (Other)
  Sender: FDA-Public Use
  Company Number: AU-BIOVITRUM-2023-AU-006151

PATIENT
  Sex: Male

DRUGS (5)
  1. ANAKINRA [Suspect]
     Active Substance: ANAKINRA
     Indication: Juvenile idiopathic arthritis
     Dosage: NOT REPORTED
     Route: 058
     Dates: start: 20200415
  2. ANAKINRA [Suspect]
     Active Substance: ANAKINRA
     Dosage: BREAK JAN-MAY 2021
     Route: 058
  3. METHOTREXATE [Concomitant]
     Active Substance: METHOTREXATE
     Indication: Product used for unknown indication
     Dosage: REASON FOR DISCONTINUATION: NO RESPONSE
     Dates: start: 202009, end: 202102
  4. ETANERCEPT [Concomitant]
     Active Substance: ETANERCEPT
     Indication: Product used for unknown indication
     Dosage: REASON FOR DISCONTINUATION: NO RESPONSE, EXTREME NEEDLE PHOBIA
     Dates: start: 20201214, end: 202102
  5. TOCILIZUMAB [Concomitant]
     Active Substance: TOCILIZUMAB
     Indication: Product used for unknown indication
     Dosage: REASON FOR DISCONTINUATION: EXTREME NEEDLE PHOBIA AND POOR RESPONSE, INCREASED LIVER ENZYMES
     Dates: start: 20210305, end: 202105

REACTIONS (4)
  - Juvenile idiopathic arthritis [Unknown]
  - Condition aggravated [Unknown]
  - Fear of injection [Unknown]
  - Drug ineffective [Unknown]
